FAERS Safety Report 12872635 (Version 1)
Quarter: 2016Q4

REPORT INFORMATION
  Report Type: Spontaneous
  Country: FR (occurrence: FR)
  Receive Date: 20161021
  Receipt Date: 20161021
  Transmission Date: 20170207
  Serious: Yes (Life-Threatening, Hospitalization, Other)
  Sender: FDA-Public Use
  Company Number: FR-ELI_LILLY_AND_COMPANY-FR201610005160

PATIENT
  Age: 49 Year
  Sex: Female

DRUGS (7)
  1. CYMBALTA [Suspect]
     Active Substance: DULOXETINE HYDROCHLORIDE
     Indication: PRODUCT USED FOR UNKNOWN INDICATION
     Dosage: 6 DF, SINGLE
     Route: 048
     Dates: start: 20160925, end: 20160925
  2. TERALITHE [Suspect]
     Active Substance: LITHIUM CARBONATE
     Indication: PRODUCT USED FOR UNKNOWN INDICATION
     Dosage: 7 DF, SINGLE
     Route: 048
     Dates: start: 20160925, end: 20160925
  3. SOLIAN [Suspect]
     Active Substance: AMISULPRIDE
     Indication: PRODUCT USED FOR UNKNOWN INDICATION
     Dosage: 21 DF, SINGLE
     Route: 048
     Dates: start: 20160925, end: 20160925
  4. AVLOCARDYL                         /00030001/ [Suspect]
     Active Substance: PROPRANOLOL HYDROCHLORIDE
     Indication: PRODUCT USED FOR UNKNOWN INDICATION
     Dosage: 200 MG, SINGLE
     Route: 048
     Dates: start: 20160925, end: 20160925
  5. ANAFRANIL [Suspect]
     Active Substance: CLOMIPRAMINE HYDROCHLORIDE
     Indication: PRODUCT USED FOR UNKNOWN INDICATION
     Dosage: 21 DF, SINGLE
     Route: 048
     Dates: start: 20160925, end: 20160925
  6. SERESTA [Suspect]
     Active Substance: OXAZEPAM
     Indication: PRODUCT USED FOR UNKNOWN INDICATION
     Dosage: 21 DF, SINGLE
     Route: 048
     Dates: start: 20160925, end: 20160925
  7. IMOVANE [Suspect]
     Active Substance: ZOPICLONE
     Indication: PRODUCT USED FOR UNKNOWN INDICATION
     Dosage: 7 DF, SINGLE
     Route: 048
     Dates: start: 20160925, end: 20160925

REACTIONS (8)
  - Major depression [Unknown]
  - Acute kidney injury [Recovered/Resolved]
  - Toxicity to various agents [Unknown]
  - Hypovolaemic shock [Recovered/Resolved]
  - Toxic encephalopathy [Recovered/Resolved]
  - Left ventricular dysfunction [Unknown]
  - Dehydration [Unknown]
  - Intentional overdose [Unknown]

NARRATIVE: CASE EVENT DATE: 20160925
